FAERS Safety Report 17171030 (Version 2)
Quarter: 2019Q4

REPORT INFORMATION
  Report Type: Spontaneous
  Country: PL (occurrence: PL)
  Receive Date: 20191218
  Receipt Date: 20191223
  Transmission Date: 20200122
  Serious: Yes (Other)
  Sender: FDA-Public Use
  Company Number: PL-JNJFOC-20191212813

PATIENT
  Age: 29 Year
  Sex: Male

DRUGS (4)
  1. TOPIRAMATE. [Suspect]
     Active Substance: TOPIRAMATE
     Indication: PRODUCT USED FOR UNKNOWN INDICATION
     Route: 048
  2. LACOSAMIDE. [Suspect]
     Active Substance: LACOSAMIDE
     Indication: PRODUCT USED FOR UNKNOWN INDICATION
     Route: 065
  3. VALPROIC ACID. [Suspect]
     Active Substance: VALPROIC ACID
     Indication: PRODUCT USED FOR UNKNOWN INDICATION
     Route: 065
  4. OXCARBAZEPINE. [Suspect]
     Active Substance: OXCARBAZEPINE
     Indication: PRODUCT USED FOR UNKNOWN INDICATION
     Route: 065

REACTIONS (21)
  - Weight decreased [Unknown]
  - Somnolence [Unknown]
  - Depressed mood [Unknown]
  - Anxiety [Unknown]
  - Dissociation [Unknown]
  - Speech disorder [Unknown]
  - Bradykinesia [Unknown]
  - Palpitations [Unknown]
  - Tremor [Unknown]
  - Dizziness [Unknown]
  - Fear [Unknown]
  - Libido decreased [Unknown]
  - Erectile dysfunction [Unknown]
  - Nystagmus [Unknown]
  - Therapeutic product effect incomplete [Unknown]
  - Memory impairment [Unknown]
  - Bone pain [Unknown]
  - Decreased appetite [Unknown]
  - Dry mouth [Unknown]
  - Aggression [Unknown]
  - Diarrhoea [Unknown]
